FAERS Safety Report 10550812 (Version 1)
Quarter: 2014Q4

REPORT INFORMATION
  Report Type: Spontaneous
  Country: JP (occurrence: None)
  Receive Date: 20141027
  Receipt Date: 20141027
  Transmission Date: 20150529
  Serious: Yes (Hospitalization)
  Sender: FDA-Public Use
  Company Number: JP-20140328

PATIENT
  Age: 8 Decade
  Sex: Male

DRUGS (3)
  1. EPIRUBICIN [Concomitant]
     Active Substance: EPIRUBICIN
  2. LIPIODOL ULTRA-FLUIDE [Suspect]
     Active Substance: ETHIODIZED OIL
     Indication: THERAPEUTIC EMBOLISATION
     Route: 013
     Dates: start: 20130318, end: 20130318
  3. GELPART(GELATIN) [Concomitant]

REACTIONS (3)
  - Mucous membrane disorder [None]
  - Biliary ischaemia [None]
  - Bile duct stenosis [None]

NARRATIVE: CASE EVENT DATE: 20130419
